FAERS Safety Report 20662151 (Version 1)
Quarter: 2022Q2

REPORT INFORMATION
  Report Type: Spontaneous
  Country: US (occurrence: US)
  Receive Date: 20220401
  Receipt Date: 20220401
  Transmission Date: 20220721
  Serious: Yes (Other)
  Sender: FDA-Public Use
  Company Number: US-AMGEN-USASP2022054415

PATIENT
  Age: 63 Year
  Sex: Female

DRUGS (1)
  1. OTEZLA [Suspect]
     Active Substance: APREMILAST
     Indication: Psoriasis
     Dosage: UNK
     Route: 065

REACTIONS (7)
  - Oral surgery [Unknown]
  - Presyncope [Unknown]
  - Malaise [Unknown]
  - Hyperhidrosis [Unknown]
  - Palpitations [Unknown]
  - Migraine [Unknown]
  - Abdominal discomfort [Unknown]

NARRATIVE: CASE EVENT DATE: 20220324
